FAERS Safety Report 24727953 (Version 1)
Quarter: 2024Q4

REPORT INFORMATION
  Report Type: Spontaneous
  Country: PT (occurrence: PT)
  Receive Date: 20241212
  Receipt Date: 20241212
  Transmission Date: 20250115
  Serious: Yes (Other)
  Sender: TEVA
  Company Number: None

PATIENT
  Age: 50 Year
  Sex: Female
  Weight: 90 kg

DRUGS (1)
  1. BUPRENORPHINE [Suspect]
     Active Substance: BUPRENORPHINE
     Indication: Cancer pain
     Dosage: ALTHOUGH THE CORRECT AMOUNT IS 96/96H, THE PATIENT APPLIES 72/72H
     Route: 062

REACTIONS (2)
  - Application site pruritus [Recovering/Resolving]
  - Application site irritation [Recovering/Resolving]
